FAERS Safety Report 9662270 (Version 3)
Quarter: 2013Q4

REPORT INFORMATION
  Report Type: Spontaneous
  Country: JP (occurrence: JP)
  Receive Date: 20131031
  Receipt Date: 20131122
  Transmission Date: 20140711
  Serious: Yes (Hospitalization)
  Sender: FDA-Public Use
  Company Number: JP-TAKEDA-2013TUS001878

PATIENT
  Sex: 0

DRUGS (5)
  1. FEBURIC [Suspect]
     Indication: HYPERURICAEMIA
     Dosage: 10 MG TABLET, QD
     Route: 048
     Dates: start: 20120516, end: 20120525
  2. JUVELA NICOTINATE [Concomitant]
     Indication: VASCULAR INSUFFICIENCY
     Dosage: 300 MG, QD
     Route: 048
     Dates: start: 20120305
  3. SELBEX [Concomitant]
     Indication: GASTROINTESTINAL MUCOSAL DISORDER
     Dosage: 150 MG, QD
     Route: 048
     Dates: start: 20120305
  4. RENIVACE [Concomitant]
     Indication: HYPERTENSION
     Dosage: 5 MG, QD
     Route: 048
     Dates: start: 1996
  5. TENORMIN [Concomitant]
     Indication: PALPITATIONS
     Dosage: UNK
     Route: 048
     Dates: start: 20120515

REACTIONS (4)
  - Malaise [Recovered/Resolved]
  - Dizziness postural [Recovered/Resolved]
  - Nausea [Recovered/Resolved]
  - Palpitations [Recovered/Resolved]
